FAERS Safety Report 11387558 (Version 1)
Quarter: 2015Q3

REPORT INFORMATION
  Report Type: Report from Study
  Country: US (occurrence: US)
  Receive Date: 20150817
  Receipt Date: 20150817
  Transmission Date: 20151125
  Serious: Yes (Hospitalization)
  Sender: FDA-Public Use
  Company Number: US-BAYER-2015-396562

PATIENT
  Age: 69 Year
  Sex: Male

DRUGS (6)
  1. MORPHINE SULPHATE [Concomitant]
     Active Substance: MORPHINE SULFATE
  2. STIVARGA [Suspect]
     Active Substance: REGORAFENIB
     Indication: RECTOSIGMOID CANCER
     Dosage: 160 MG, EVERY DAY 1-21 DAYS THEN 7 DAY OFF
     Route: 048
     Dates: start: 20150706, end: 20150802
  3. LISINOPRIL. [Concomitant]
     Active Substance: LISINOPRIL
  4. PANTOPRAZOLE SODIUM. [Concomitant]
     Active Substance: PANTOPRAZOLE SODIUM
  5. AMOXICILLIN. [Concomitant]
     Active Substance: AMOXICILLIN
  6. TEMAZEPAM. [Concomitant]
     Active Substance: TEMAZEPAM

REACTIONS (3)
  - Rectal ulcer haemorrhage [Not Recovered/Not Resolved]
  - Rectal ulcer [Not Recovered/Not Resolved]
  - Gastrointestinal ulcer perforation [Not Recovered/Not Resolved]

NARRATIVE: CASE EVENT DATE: 20150802
